APPROVED DRUG PRODUCT: CLOMIPRAMINE HYDROCHLORIDE
Active Ingredient: CLOMIPRAMINE HYDROCHLORIDE
Strength: 25MG
Dosage Form/Route: CAPSULE;ORAL
Application: A211767 | Product #001 | TE Code: AB
Applicant: MANKIND PHARMA LTD
Approved: Apr 8, 2019 | RLD: No | RS: No | Type: RX